FAERS Safety Report 4536027-9 (Version None)
Quarter: 2005Q1

REPORT INFORMATION
  Report Type: 
  Country: None (occurrence: None)
  Receive Date: 20041216
  Receipt Date: 20031114
  Transmission Date: 20050727
  Serious: Yes (Other)
  Sender: FDA-Public Use
  Company Number: HQWYE419929AUG03

PATIENT
  Age: 15 Year
  Sex: Female
  Weight: 54.48 kg

DRUGS (3)
  1. EFFEXOR XR [Suspect]
     Dosage: ^CURRENTLY ON 225 MG (FREQUENCY UNKNOWN)^, ORAL
     Route: 048
     Dates: start: 20030501
  2. LAMICTAL [Concomitant]
  3. STRATTERA [Concomitant]

REACTIONS (3)
  - CONDITION AGGRAVATED [None]
  - DEPRESSION [None]
  - INTENTIONAL SELF-INJURY [None]
